FAERS Safety Report 19128850 (Version 1)
Quarter: 2021Q2

REPORT INFORMATION
  Report Type: Spontaneous
  Country: US (occurrence: US)
  Receive Date: 20210413
  Receipt Date: 20210413
  Transmission Date: 20210717
  Serious: No
  Sender: FDA-Public Use
  Company Number: US-ALLERGAN-2105158US

PATIENT
  Sex: Female

DRUGS (1)
  1. LATISSE [Suspect]
     Active Substance: BIMATOPROST
     Indication: GROWTH OF EYELASHES
     Route: 061

REACTIONS (4)
  - Eyelids pruritus [Recovered/Resolved]
  - Hordeolum [Recovering/Resolving]
  - Erythema of eyelid [Recovered/Resolved]
  - Eyelid exfoliation [Recovered/Resolved]
